FAERS Safety Report 13813136 (Version 30)
Quarter: 2020Q1

REPORT INFORMATION
  Report Type: Report from Study
  Country: CA (occurrence: CA)
  Receive Date: 20170731
  Receipt Date: 20200213
  Transmission Date: 20200409
  Serious: Yes (Hospitalization, Other)
  Sender: FDA-Public Use
  Company Number: CA-ROCHE-1925212

PATIENT
  Age: 58 Year
  Sex: Female
  Weight: 90.1 kg

DRUGS (24)
  1. ACTEMRA [Suspect]
     Active Substance: TOCILIZUMAB
     Dosage: INFUSION#17
     Route: 042
     Dates: start: 20180427
  2. ACTEMRA [Suspect]
     Active Substance: TOCILIZUMAB
     Dosage: INFUSION#18
     Route: 042
     Dates: start: 20180604
  3. METHOTREXATE. [Suspect]
     Active Substance: METHOTREXATE
     Indication: PRODUCT USED FOR UNKNOWN INDICATION
     Route: 065
     Dates: end: 2018
  4. RESTORIL [Concomitant]
     Active Substance: TEMAZEPAM
  5. ACTEMRA [Suspect]
     Active Substance: TOCILIZUMAB
     Dosage: 10TH INFUSION
     Route: 042
     Dates: start: 20171123
  6. ACTEMRA [Suspect]
     Active Substance: TOCILIZUMAB
     Route: 042
     Dates: start: 20180918
  7. HYDROMORPH CONTIN [Concomitant]
     Active Substance: HYDROMORPHONE
  8. ESOMEPRAZOLE. [Concomitant]
     Active Substance: ESOMEPRAZOLE MAGNESIUM
  9. ZANTAC [Concomitant]
     Active Substance: RANITIDINE HYDROCHLORIDE
  10. VITAMIN A [RETINOL] [Concomitant]
     Active Substance: RETINOL
  11. ACTEMRA [Suspect]
     Active Substance: TOCILIZUMAB
     Route: 042
  12. LASIX [Concomitant]
     Active Substance: FUROSEMIDE
  13. CELEBREX [Suspect]
     Active Substance: CELECOXIB
     Indication: PRODUCT USED FOR UNKNOWN INDICATION
     Route: 065
  14. RIVOTRIL [Concomitant]
     Active Substance: CLONAZEPAM
     Route: 048
  15. ACTEMRA [Suspect]
     Active Substance: TOCILIZUMAB
     Dosage: 8TH INFUSION
     Route: 042
     Dates: start: 20171013
  16. ACTEMRA [Suspect]
     Active Substance: TOCILIZUMAB
     Route: 042
     Dates: start: 20180312, end: 20180312
  17. ACTEMRA [Suspect]
     Active Substance: TOCILIZUMAB
     Indication: RHEUMATOID ARTHRITIS
     Route: 042
     Dates: start: 20170412
  18. CORTISONE [Concomitant]
     Active Substance: CORTISONE
  19. COLACE [Concomitant]
     Active Substance: DOCUSATE SODIUM
  20. FOLIC ACID. [Concomitant]
     Active Substance: FOLIC ACID
  21. ACTEMRA [Suspect]
     Active Substance: TOCILIZUMAB
     Dosage: 13TH INFUSION
     Route: 042
     Dates: start: 20180129
  22. ACTEMRA [Suspect]
     Active Substance: TOCILIZUMAB
     Route: 042
     Dates: start: 20180627
  23. SPORANOX [Suspect]
     Active Substance: ITRACONAZOLE
     Indication: PRODUCT USED FOR UNKNOWN INDICATION
     Route: 065
  24. SENOKOT [Concomitant]
     Active Substance: SENNOSIDES

REACTIONS (35)
  - Bronchitis [Not Recovered/Not Resolved]
  - Drug ineffective [Unknown]
  - Abdominal hernia [Unknown]
  - Nausea [Unknown]
  - Blood pressure diastolic decreased [Unknown]
  - Hypoglycaemia [Not Recovered/Not Resolved]
  - Ill-defined disorder [Not Recovered/Not Resolved]
  - Weight increased [Recovering/Resolving]
  - Pain in extremity [Recovered/Resolved]
  - Burning sensation [Not Recovered/Not Resolved]
  - Limb discomfort [Not Recovered/Not Resolved]
  - Gastric ulcer [Unknown]
  - Loss of personal independence in daily activities [Unknown]
  - Pulmonary mass [Unknown]
  - Vaginal infection [Not Recovered/Not Resolved]
  - Cystitis [Recovered/Resolved]
  - Oedema peripheral [Not Recovered/Not Resolved]
  - Infusion site urticaria [Recovering/Resolving]
  - Fluid retention [Recovering/Resolving]
  - Urine output decreased [Recovering/Resolving]
  - Middle insomnia [Not Recovered/Not Resolved]
  - Oxygen saturation decreased [Unknown]
  - Eye swelling [Not Recovered/Not Resolved]
  - Pain [Not Recovered/Not Resolved]
  - Therapeutic product effect decreased [Unknown]
  - Rheumatoid arthritis [Unknown]
  - Oedema [Unknown]
  - Pain in extremity [Unknown]
  - Hypoaesthesia [Unknown]
  - Fungal infection [Unknown]
  - Vomiting [Unknown]
  - Blood pressure diastolic abnormal [Unknown]
  - Diarrhoea [Not Recovered/Not Resolved]
  - Arthralgia [Not Recovered/Not Resolved]
  - Infusion related reaction [Recovered/Resolved]

NARRATIVE: CASE EVENT DATE: 20170609
